FAERS Safety Report 6788782-5 (Version None)
Quarter: 2010Q2

REPORT INFORMATION
  Report Type: 
  Country: None (occurrence: None)
  Receive Date: 20100623
  Receipt Date: 20080428
  Transmission Date: 20101027
  Serious: Yes (Hospitalization)
  Sender: FDA-Public Use
  Company Number: US-PFIZER INC-2008038360

PATIENT
  Age: 46 Year
  Sex: Male

DRUGS (6)
  1. IDARUBICIN HCL [Suspect]
     Indication: LEUKAEMIA
  2. VESANOID [Suspect]
     Indication: ACUTE PROMYELOCYTIC LEUKAEMIA
     Dates: start: 20080328
  3. ACYCLOVIR [Concomitant]
  4. FOLIC ACID [Concomitant]
  5. CLARITIN [Concomitant]
  6. PROTONIX [Concomitant]

REACTIONS (2)
  - CARDIAC ENZYMES INCREASED [None]
  - CHEST PAIN [None]
